FAERS Safety Report 6971851-4 (Version None)
Quarter: 2010Q3

REPORT INFORMATION
  Report Type: 
  Country: None (occurrence: None)
  Receive Date: 20100908
  Receipt Date: 20100908
  Transmission Date: 20110219
  Serious: No
  Sender: FDA-Public Use
  Company Number: None

PATIENT
  Age: 29 Year
  Sex: Female
  Weight: 77 kg

DRUGS (1)
  1. MARCAINE [Suspect]
     Indication: SPINAL ANAESTHESIA
     Dosage: ONCE EPIDURAL
     Route: 008
     Dates: start: 20100902, end: 20100902

REACTIONS (2)
  - ANAESTHETIC COMPLICATION [None]
  - PRODUCT QUALITY ISSUE [None]
